FAERS Safety Report 5143790-5 (Version None)
Quarter: 2006Q4

REPORT INFORMATION
  Report Type: 
  Country: None (occurrence: None)
  Receive Date: 20061106
  Receipt Date: 20060126
  Transmission Date: 20070319
  Serious: Yes (Hospitalization)
  Sender: FDA-Public Use
  Company Number: PHBS2006JP01641

PATIENT
  Age: 46 Year
  Sex: Male
  Weight: 70 kg

DRUGS (8)
  1. ADALAT [Suspect]
     Indication: HYPERTENSION
     Dosage: 100 MG, ONCE/SINGLE
     Route: 048
     Dates: start: 20060126
  2. ADALAT [Suspect]
     Dosage: 400 MG, ONCE/SINGLE
  3. ARTIST [Suspect]
     Indication: HYPERTENSION
     Dosage: 20 MG, ONCE/SINGLE
     Route: 048
  4. ALCOHOL [Suspect]
  5. DIOVAN [Suspect]
     Indication: HYPERTENSION
     Dosage: 80 MG, QD
     Route: 048
  6. DIOVAN [Suspect]
     Dosage: 1120 MG, ONCE/SINGLE
     Route: 048
     Dates: start: 20060126
  7. CALCIUM [Concomitant]
  8. BETA BLOCKING AGENTS [Concomitant]

REACTIONS (8)
  - ANURIA [None]
  - DEPRESSION [None]
  - DRUG TOXICITY [None]
  - HYPOTENSION [None]
  - INTENTIONAL OVERDOSE [None]
  - METABOLIC ACIDOSIS [None]
  - RENAL DISORDER [None]
  - SUICIDE ATTEMPT [None]
